FAERS Safety Report 12189802 (Version 1)
Quarter: 2016Q1

REPORT INFORMATION
  Report Type: Spontaneous
  Country: KR (occurrence: KR)
  Receive Date: 20160318
  Receipt Date: 20160318
  Transmission Date: 20160526
  Serious: Yes (Hospitalization)
  Sender: FDA-Public Use
  Company Number: KR-ASTRAZENECA-2016SE28922

PATIENT
  Age: 57 Year
  Sex: Female

DRUGS (14)
  1. NICORANDIL [Suspect]
     Active Substance: NICORANDIL
     Route: 065
  2. CALCIUM CITRATE [Suspect]
     Active Substance: CALCIUM CITRATE
     Route: 065
  3. IMOTUN [Suspect]
     Active Substance: AVOCADO\SOYBEAN OIL
     Route: 065
  4. STOGAR [Suspect]
     Active Substance: LAFUTIDINE
     Indication: BRONCHITIS
     Route: 065
     Dates: start: 20150406
  5. PANTOLOC [Suspect]
     Active Substance: PANTOPRAZOLE SODIUM
     Route: 065
  6. ZYLORIC [Suspect]
     Active Substance: ALLOPURINOL
     Route: 065
  7. METHYLON [Suspect]
     Active Substance: METHYLPREDNISOLONE
     Indication: BRONCHITIS
     Route: 065
     Dates: start: 20150406
  8. CALCORT [Suspect]
     Active Substance: DEFLAZACORT
     Route: 065
  9. IRBESARTAN. [Suspect]
     Active Substance: IRBESARTAN
     Route: 065
  10. HERBAL COUGH AND COLD PREPARATION NOS [Suspect]
     Active Substance: HERBALS
     Indication: BRONCHITIS
     Route: 065
     Dates: start: 20150406
  11. SYMBICORT [Suspect]
     Active Substance: BUDESONIDE\FORMOTEROL FUMARATE DIHYDRATE
     Route: 055
  12. CRAVIT [Suspect]
     Active Substance: LEVOFLOXACIN
     Indication: BRONCHITIS
     Route: 065
     Dates: start: 20150406
  13. EVISTA [Suspect]
     Active Substance: RALOXIFENE HYDROCHLORIDE
     Route: 065
  14. CODEINE [Suspect]
     Active Substance: CODEINE
     Indication: BRONCHITIS
     Route: 065
     Dates: start: 20150406

REACTIONS (4)
  - Asthenia [Unknown]
  - Decreased appetite [Unknown]
  - Bronchitis [Unknown]
  - Acute kidney injury [Recovered/Resolved]
